FAERS Safety Report 8327550-X (Version None)
Quarter: 2012Q2

REPORT INFORMATION
  Report Type: 
  Country: None (occurrence: None)
  Receive Date: 20120502
  Receipt Date: 20120427
  Transmission Date: 20120825
  Serious: No
  Sender: FDA-Public Use
  Company Number: US-BAYER-2012-041833

PATIENT
  Sex: Male

DRUGS (1)
  1. NEXAVAR [Suspect]
     Indication: HEPATIC NEOPLASM MALIGNANT
     Dosage: UNK
     Dates: start: 20120410

REACTIONS (6)
  - DIZZINESS [None]
  - FEELING HOT [None]
  - PAIN [None]
  - ABDOMINAL PAIN [None]
  - BACK PAIN [None]
  - BLOOD CHOLESTEROL INCREASED [None]
